FAERS Safety Report 24269481 (Version 2)
Quarter: 2024Q4

REPORT INFORMATION
  Report Type: Spontaneous
  Country: US (occurrence: US)
  Receive Date: 20240830
  Receipt Date: 20241204
  Transmission Date: 20250115
  Serious: No
  Sender: BRISTOL-MYERS SQUIBB COMPANY
  Company Number: US-BRISTOL-MYERS SQUIBB COMPANY-2024-138556

PATIENT
  Age: 60 Year
  Sex: Male
  Weight: 65.9 kg

DRUGS (4)
  1. OPDIVO [Suspect]
     Active Substance: NIVOLUMAB
     Indication: Thyroid cancer
     Dosage: OPDIVO: 4X100MG VIALS
     Route: 042
  2. OPDIVO [Suspect]
     Active Substance: NIVOLUMAB
     Dosage: OPDIVO: 4X100MG VIALS
     Route: 042
  3. YERVOY [Suspect]
     Active Substance: IPILIMUMAB
     Indication: Thyroid cancer
     Dosage: 2X50MG VIALS
     Route: 042
  4. YERVOY [Suspect]
     Active Substance: IPILIMUMAB
     Dosage: 2X50MG VIALS
     Route: 042

REACTIONS (2)
  - Weight increased [Unknown]
  - Off label use [Unknown]
